FAERS Safety Report 13612629 (Version 2)
Quarter: 2017Q3

REPORT INFORMATION
  Report Type: Spontaneous
  Country: KR (occurrence: KR)
  Receive Date: 20170605
  Receipt Date: 20170714
  Transmission Date: 20171127
  Serious: Yes (Hospitalization, Other)
  Sender: FDA-Public Use
  Company Number: KR-009507513-1706KOR000380

PATIENT
  Age: 69 Year
  Sex: Male
  Weight: 72.7 kg

DRUGS (46)
  1. FLUOROURACIL. [Concomitant]
     Active Substance: FLUOROURACIL
     Dosage: 1342 MG, QD, CYCLE 2
     Route: 042
     Dates: start: 20170219, end: 20170223
  2. CISPLATIN. [Concomitant]
     Active Substance: CISPLATIN
     Dosage: 63.72 MG, ONCE, CYCLE 3
     Route: 042
     Dates: start: 20170318, end: 20170318
  3. DEXAMETHASONE. [Concomitant]
     Active Substance: DEXAMETHASONE
     Dosage: 8 MG, BID
     Route: 048
     Dates: start: 20170412, end: 20170413
  4. PALONOSETRON HYDROCHLORIDE. [Concomitant]
     Active Substance: PALONOSETRON HYDROCHLORIDE
     Dosage: 0.25 MG, ONCE
     Route: 042
     Dates: start: 20170410, end: 20170410
  5. LIMAPROST [Concomitant]
     Active Substance: LIMAPROST
     Indication: SPINAL COLUMN STENOSIS
     Dosage: 1 TABLEY, BID
     Route: 048
     Dates: start: 20160429, end: 20170228
  6. TRIAZOLAM. [Concomitant]
     Active Substance: TRIAZOLAM
     Indication: INSOMNIA
     Dosage: 0.25 MG, PRN
     Route: 048
     Dates: start: 20161202
  7. DEXAMETHASONE. [Concomitant]
     Active Substance: DEXAMETHASONE
     Dosage: 8 MG, ONCE
     Route: 048
     Dates: start: 20170411, end: 20170411
  8. PALONOSETRON HYDROCHLORIDE. [Concomitant]
     Active Substance: PALONOSETRON HYDROCHLORIDE
     Dosage: 0.25 MG, ONCE
     Route: 042
     Dates: start: 20170219, end: 20170219
  9. MIRTAZAPINE. [Concomitant]
     Active Substance: MIRTAZAPINE
     Indication: INSOMNIA
     Dosage: 0.5 TABLET, QD
     Dates: start: 20161202
  10. FAMOTIDINE. [Concomitant]
     Active Substance: FAMOTIDINE
     Dosage: 20 MG, QD
     Route: 042
     Dates: start: 20170219, end: 20170223
  11. FUROSEMIDE. [Concomitant]
     Active Substance: FUROSEMIDE
     Dosage: 20 MG, QD
     Route: 042
     Dates: start: 20170126, end: 20170130
  12. EMEND (FOSAPREPITANT DIMEGLUMINE) [Suspect]
     Active Substance: FOSAPREPITANT DIMEGLUMINE
     Dosage: 150 MG, ONCE
     Route: 042
     Dates: start: 20170318, end: 20170318
  13. FLUOROURACIL. [Concomitant]
     Active Substance: FLUOROURACIL
     Dosage: 1056 MG, QD, CYCLE 4
     Route: 042
     Dates: start: 20170410, end: 20170414
  14. CISPLATIN. [Concomitant]
     Active Substance: CISPLATIN
     Dosage: 63.36 MG, ONCE, CYCLE 4
     Route: 042
     Dates: start: 20170410, end: 20170410
  15. DEXAMETHASONE. [Concomitant]
     Active Substance: DEXAMETHASONE
     Dosage: 10 MG, ONCE
     Route: 042
     Dates: start: 20170412, end: 20170412
  16. DEXAMETHASONE. [Concomitant]
     Active Substance: DEXAMETHASONE
     Dosage: 8 MG, ONCE
     Route: 048
     Dates: start: 20170319, end: 20170319
  17. PALONOSETRON HYDROCHLORIDE. [Concomitant]
     Active Substance: PALONOSETRON HYDROCHLORIDE
     Indication: PROPHYLAXIS OF NAUSEA AND VOMITING
     Dosage: 0.25 MG, ONCE
     Route: 042
     Dates: start: 20170124, end: 20170124
  18. PALONOSETRON HYDROCHLORIDE. [Concomitant]
     Active Substance: PALONOSETRON HYDROCHLORIDE
     Dosage: 0.25 MG, ONCE
     Route: 042
     Dates: start: 20170318, end: 20170318
  19. FUROSEMIDE. [Concomitant]
     Active Substance: FUROSEMIDE
     Dosage: 20 MG, BID
     Route: 042
     Dates: start: 20170318, end: 20170318
  20. FLUOROURACIL. [Concomitant]
     Active Substance: FLUOROURACIL
     Indication: LARYNGEAL CANCER
     Dosage: 1780 MG, QD, CYCLE 1
     Route: 042
     Dates: start: 20170124, end: 20170128
  21. CISPLATIN. [Concomitant]
     Active Substance: CISPLATIN
     Dosage: 80 MG, ONCE, CYCLE 2
     Route: 042
     Dates: start: 20170219, end: 20170219
  22. EMEND (FOSAPREPITANT DIMEGLUMINE) [Suspect]
     Active Substance: FOSAPREPITANT DIMEGLUMINE
     Indication: PROPHYLAXIS OF NAUSEA AND VOMITING
     Dosage: 150 MG, ONCE
     Route: 042
     Dates: start: 20170124, end: 20170124
  23. EMEND (FOSAPREPITANT DIMEGLUMINE) [Suspect]
     Active Substance: FOSAPREPITANT DIMEGLUMINE
     Dosage: 150 MG, ONCE
     Route: 042
     Dates: start: 20170410, end: 20170410
  24. FLUOROURACIL. [Concomitant]
     Active Substance: FLUOROURACIL
     Dosage: 1062 MG, QD, CYCLE 3
     Route: 042
     Dates: start: 20170318, end: 20170322
  25. CISPLATIN. [Concomitant]
     Active Substance: CISPLATIN
     Indication: LARYNGEAL CANCER
     Dosage: 106.8 MG, ONCE, CYCLE 1
     Route: 042
     Dates: start: 20170124, end: 20170124
  26. DEXAMETHASONE. [Concomitant]
     Active Substance: DEXAMETHASONE
     Indication: PREMEDICATION
     Dosage: 10 MG, ONCE
     Route: 042
     Dates: start: 20170124, end: 20170124
  27. DEXAMETHASONE. [Concomitant]
     Active Substance: DEXAMETHASONE
     Indication: PREMEDICATION
     Dosage: 8 MG, BID
     Route: 048
     Dates: start: 20170125, end: 20170127
  28. ACETAMINOPHEN. [Concomitant]
     Active Substance: ACETAMINOPHEN
     Indication: APPLICATION SITE PAIN
     Dosage: 650 MG, ONCE
     Route: 048
     Dates: start: 20170123, end: 20170123
  29. FAMOTIDINE. [Concomitant]
     Active Substance: FAMOTIDINE
     Dosage: 20 MG, QD
     Route: 042
     Dates: start: 20170318, end: 20170322
  30. FUROSEMIDE. [Concomitant]
     Active Substance: FUROSEMIDE
     Dosage: 20 MG, BID
     Route: 042
     Dates: start: 20170219, end: 20170219
  31. DEXAMETHASONE. [Concomitant]
     Active Substance: DEXAMETHASONE
     Dosage: 8 MG, BID
     Route: 048
     Dates: start: 20170320, end: 20170321
  32. NIFEDIPINE. [Concomitant]
     Active Substance: NIFEDIPINE
     Indication: HYPERTENSION
     Dosage: 40 MG, QD
     Route: 048
     Dates: start: 20161004
  33. FAMOTIDINE. [Concomitant]
     Active Substance: FAMOTIDINE
     Indication: PROPHYLAXIS AGAINST GASTROINTESTINAL ULCER
     Dosage: 20 MG, QD
     Route: 042
     Dates: start: 20170124, end: 20170128
  34. EMEND (FOSAPREPITANT DIMEGLUMINE) [Suspect]
     Active Substance: FOSAPREPITANT DIMEGLUMINE
     Dosage: 150 MG, ONCE
     Route: 042
     Dates: start: 20170219, end: 20170219
  35. DEXAMETHASONE. [Concomitant]
     Active Substance: DEXAMETHASONE
     Dosage: 10 MG, ONCE
     Route: 042
     Dates: start: 20170208, end: 20170208
  36. DEXAMETHASONE. [Concomitant]
     Active Substance: DEXAMETHASONE
     Dosage: 10 MG, ONCE
     Route: 042
     Dates: start: 20170219, end: 20170219
  37. FENTANYL. [Concomitant]
     Active Substance: FENTANYL
     Indication: CANCER PAIN
     Dosage: 25 MICROGRAM, PRN
     Route: 062
     Dates: start: 20170123
  38. FUROSEMIDE. [Concomitant]
     Active Substance: FUROSEMIDE
     Dosage: 20 MG, BID
     Route: 042
     Dates: start: 20170410, end: 20170410
  39. FENTANYL. [Concomitant]
     Active Substance: FENTANYL
     Indication: CANCER PAIN
     Dosage: 300 MICROGRAM, QD
     Route: 048
     Dates: start: 20170124, end: 20170306
  40. DEXAMETHASONE. [Concomitant]
     Active Substance: DEXAMETHASONE
     Dosage: 10 MG, ONCE
     Route: 042
     Dates: start: 20170318, end: 20170318
  41. DEXAMETHASONE. [Concomitant]
     Active Substance: DEXAMETHASONE
     Dosage: 10 MG, ONCE
     Route: 042
     Dates: start: 20170410, end: 20170410
  42. DEXAMETHASONE. [Concomitant]
     Active Substance: DEXAMETHASONE
     Dosage: 8 MG, QD
     Route: 048
     Dates: start: 20170220, end: 20170222
  43. CEFOTIAM [Concomitant]
     Active Substance: CEFOTIAM
     Indication: INFECTION PROPHYLAXIS
     Dosage: 1 G, ONCE
     Route: 042
     Dates: start: 20170123, end: 20170123
  44. FAMOTIDINE. [Concomitant]
     Active Substance: FAMOTIDINE
     Dosage: 20 MG, QD
     Route: 042
     Dates: start: 20170410, end: 20170414
  45. FUROSEMIDE. [Concomitant]
     Active Substance: FUROSEMIDE
     Indication: PROPHYLAXIS
     Dosage: 20 MG, BID
     Route: 042
     Dates: start: 20170124, end: 20170124
  46. FENTANYL. [Concomitant]
     Active Substance: FENTANYL
     Dosage: 300 MICROGRAM, QD
     Route: 048
     Dates: start: 20170317, end: 20170324

REACTIONS (6)
  - Hiccups [Recovered/Resolved]
  - Pyrexia [Recovered/Resolved]
  - Nausea [Recovered/Resolved]
  - Neutropenia [Recovered/Resolved]
  - Nausea [Recovered/Resolved]
  - Pyrexia [Recovered/Resolved]

NARRATIVE: CASE EVENT DATE: 20170125
